FAERS Safety Report 9493449 (Version 1)
Quarter: 2013Q3

REPORT INFORMATION
  Report Type: Spontaneous
  Country: CN (occurrence: CN)
  Receive Date: 20130902
  Receipt Date: 20130902
  Transmission Date: 20140515
  Serious: Yes (Other)
  Sender: FDA-Public Use
  Company Number: CN-PFIZER INC-2013250205

PATIENT
  Age: 40 Year
  Sex: Female
  Weight: 35 kg

DRUGS (1)
  1. SOLU-MEDROL [Suspect]
     Indication: FUNGAL INFECTION
     Dosage: 20 MG, 1X/DAY
     Route: 041
     Dates: start: 20111215, end: 20111217

REACTIONS (1)
  - Melaena [Recovering/Resolving]
